FAERS Safety Report 4340732-7 (Version None)
Quarter: 2004Q2

REPORT INFORMATION
  Report Type: 
  Country: None (occurrence: None)
  Receive Date: 20040414
  Receipt Date: 20040406
  Transmission Date: 20050107
  Serious: Yes (Other)
  Sender: FDA-Public Use
  Company Number: RB-606-2004

PATIENT
  Age: 50 Year
  Sex: Male

DRUGS (1)
  1. BUPRENORPHINE HYDROCHLORIDE [Suspect]
     Indication: DRUG DEPENDENCE
     Dosage: SL
     Route: 060
     Dates: start: 20030701

REACTIONS (4)
  - METASTASES TO LIVER [None]
  - PANCREATIC CARCINOMA [None]
  - PNEUMOPERITONEUM [None]
  - PULMONARY EMBOLISM [None]
